FAERS Safety Report 10372085 (Version 7)
Quarter: 2016Q3

REPORT INFORMATION
  Report Type: Report from Study
  Country: BE (occurrence: BE)
  Receive Date: 20140808
  Receipt Date: 20160728
  Transmission Date: 20161109
  Serious: Yes (Other)
  Sender: FDA-Public Use
  Company Number: PHHY2014BE097429

PATIENT
  Age: 47 Year
  Sex: Female

DRUGS (4)
  1. GILENYA [Suspect]
     Active Substance: FINGOLIMOD HYDROCHLORIDE
     Indication: MULTIPLE SCLEROSIS
     Dosage: UNK
     Route: 048
  2. TECFIDERA [Suspect]
     Active Substance: DIMETHYL FUMARATE
     Indication: PRODUCT USED FOR UNKNOWN INDICATION
     Route: 065
  3. AUBAGIO [Suspect]
     Active Substance: TERIFLUNOMIDE
     Indication: PRODUCT USED FOR UNKNOWN INDICATION
     Route: 065
  4. GILENYA [Suspect]
     Active Substance: FINGOLIMOD HYDROCHLORIDE
     Dosage: UNK
     Route: 048

REACTIONS (10)
  - Hepatic enzyme increased [Not Recovered/Not Resolved]
  - Toothache [Recovered/Resolved]
  - Abdominal pain [Recovered/Resolved]
  - Vulvovaginal candidiasis [Recovered/Resolved]
  - White blood cell count decreased [Recovered/Resolved]
  - Optic neuritis [Unknown]
  - Abdominal pain [Recovered/Resolved]
  - Flushing [Recovered/Resolved]
  - Lymphocyte count decreased [Recovered/Resolved]
  - Sensitivity of teeth [Recovered/Resolved]

NARRATIVE: CASE EVENT DATE: 20140301
